FAERS Safety Report 7401345-3 (Version None)
Quarter: 2011Q2

REPORT INFORMATION
  Report Type: 
  Country: None (occurrence: None)
  Receive Date: 20110407
  Receipt Date: 20110401
  Transmission Date: 20111010
  Serious: Yes (Hospitalization)
  Sender: FDA-Public Use
  Company Number: US-GILEAD-2011-0038172

PATIENT
  Sex: Female

DRUGS (2)
  1. ATRIPLA [Suspect]
     Indication: HIV INFECTION
  2. THEOPHYLLINE [Suspect]
     Indication: DRUG DISPENSING ERROR

REACTIONS (2)
  - PRODUCT LABEL ON WRONG PRODUCT [None]
  - MALAISE [None]
